FAERS Safety Report 17129604 (Version 1)
Quarter: 2019Q4

REPORT INFORMATION
  Report Type: Spontaneous
  Country: JP (occurrence: JP)
  Receive Date: 20191209
  Receipt Date: 20191209
  Transmission Date: 20200122
  Serious: Yes (Other)
  Sender: FDA-Public Use
  Company Number: JP-ELI_LILLY_AND_COMPANY-JP201912002463

PATIENT
  Age: 80 Year
  Sex: Male
  Weight: 44 kg

DRUGS (5)
  1. CARBOPLATIN. [Concomitant]
     Active Substance: CARBOPLATIN
     Indication: LIP AND/OR ORAL CAVITY CANCER
     Dosage: 145 MG, UNK
     Dates: start: 20190607, end: 20190709
  2. PACLITAXEL. [Concomitant]
     Active Substance: PACLITAXEL
     Indication: LIP AND/OR ORAL CAVITY CANCER
     Dosage: 100 MG/M2, UNK
     Dates: start: 20190607, end: 20190709
  3. ERBITUX [Suspect]
     Active Substance: CETUXIMAB
     Dosage: 340 MG, WEEKLY (1/W)
     Route: 042
     Dates: start: 20190614, end: 20190903
  4. ERBITUX [Suspect]
     Active Substance: CETUXIMAB
     Indication: LIP AND/OR ORAL CAVITY CANCER
     Dosage: 400 MG/M2, UNK
     Route: 042
     Dates: start: 20190607
  5. PACLITAXEL. [Concomitant]
     Active Substance: PACLITAXEL
     Dosage: 110 MG, WEEKLY (1/W)
     Dates: start: 20190730, end: 20190903

REACTIONS (1)
  - White blood cell count decreased [Unknown]

NARRATIVE: CASE EVENT DATE: 20190827
